FAERS Safety Report 4667006-9 (Version None)
Quarter: 2005Q2

REPORT INFORMATION
  Report Type: 
  Country: None (occurrence: None)
  Receive Date: 20050520
  Receipt Date: 20040610
  Transmission Date: 20051028
  Serious: Yes (Other)
  Sender: FDA-Public Use
  Company Number: PHEH2004US06383

PATIENT
  Age: 49 Year
  Sex: Male

DRUGS (8)
  1. AREDIA [Suspect]
     Indication: MULTIPLE MYELOMA
     Dosage: 90 MG, QMO
     Dates: start: 19980422, end: 20011107
  2. AREDIA [Suspect]
     Dosage: 90 MG, QMO
     Dates: start: 20020807, end: 20031001
  3. ZOMETA [Suspect]
     Indication: MULTIPLE MYELOMA
     Dosage: 4 MG, QMO
     Dates: start: 20011205, end: 20020703
  4. INTERFERON ALFA-2A [Concomitant]
     Indication: MULTIPLE MYELOMA
     Dosage: 6 MM 3XWEEK
     Dates: start: 19960901
  5. BEXTRA [Concomitant]
     Indication: PAIN IN JAW
     Dates: start: 20040501
  6. NEURONTIN [Concomitant]
     Indication: PAIN IN JAW
     Dates: start: 20030301, end: 20030401
  7. DECADRON [Concomitant]
     Indication: PAIN IN JAW
     Dosage: 4 MG, QID
     Dates: start: 20030301, end: 20030401
  8. DILAUDID [Concomitant]
     Indication: PAIN IN JAW
     Dosage: 2 MG, PRN
     Dates: start: 20030301, end: 20030401

REACTIONS (8)
  - JAW DISORDER [None]
  - OSTEOMYELITIS [None]
  - OSTEONECROSIS [None]
  - PAIN IN JAW [None]
  - SINUSITIS [None]
  - TOOTH ABSCESS [None]
  - TOOTH EXTRACTION [None]
  - WOUND DEBRIDEMENT [None]
